FAERS Safety Report 7039861-9 (Version None)
Quarter: 2010Q4

REPORT INFORMATION
  Report Type: 
  Country: None (occurrence: None)
  Receive Date: 20101012
  Receipt Date: 20101005
  Transmission Date: 20110411
  Serious: Yes (Death)
  Sender: FDA-Public Use
  Company Number: US-AMGEN-QUU422625

PATIENT
  Sex: Male

DRUGS (1)
  1. NPLATE [Suspect]
     Indication: THROMBOCYTOPENIA
     Dates: start: 20091113, end: 20100308

REACTIONS (2)
  - CHRONIC MYELOMONOCYTIC LEUKAEMIA [None]
  - SEPSIS [None]
